FAERS Safety Report 10669098 (Version 1)
Quarter: 2014Q4

REPORT INFORMATION
  Report Type: Spontaneous
  Country: US (occurrence: US)
  Receive Date: 20141222
  Receipt Date: 20141222
  Transmission Date: 20150529
  Serious: No
  Sender: FDA-Public Use
  Company Number: US-GLAXOSMITHKLINE-A1049859A

PATIENT

DRUGS (4)
  1. INDIGESTION MEDICATION [Concomitant]
  2. VITAMIN E [Concomitant]
     Active Substance: .ALPHA.-TOCOPHEROL
  3. AVODART [Suspect]
     Active Substance: DUTASTERIDE
     Indication: PROSTATIC DISORDER
     Route: 048
  4. BLOOD PRESSURE MEDICATION [Concomitant]
     Active Substance: UNSPECIFIED INGREDIENT

REACTIONS (3)
  - Muscular weakness [Not Recovered/Not Resolved]
  - Tremor [Unknown]
  - Drug administration error [Unknown]
